FAERS Safety Report 11309173 (Version 1)
Quarter: 2015Q3

REPORT INFORMATION
  Report Type: Spontaneous
  Country: GB (occurrence: GB)
  Receive Date: 20150724
  Receipt Date: 20150724
  Transmission Date: 20151125
  Serious: Yes (Other)
  Sender: FDA-Public Use
  Company Number: GB-PFIZER INC-2015244453

PATIENT
  Age: 67 Year
  Sex: Female
  Weight: 108 kg

DRUGS (9)
  1. RAMIPRIL. [Concomitant]
     Active Substance: RAMIPRIL
     Dosage: 1 DF, 1X/DAY
     Dates: start: 20141222
  2. ASPIRIN /00002701/ [Concomitant]
     Active Substance: ASPIRIN
     Dosage: 1 DF, 1X/DAY
     Dates: start: 20141222
  3. MIRTAZAPINE. [Concomitant]
     Active Substance: MIRTAZAPINE
     Indication: DEPRESSED MOOD
     Dosage: 1 DF DAILY AT NIGHT.
     Dates: start: 20141222
  4. SIMVASTATIN. [Concomitant]
     Active Substance: SIMVASTATIN
     Indication: BLOOD CHOLESTEROL INCREASED
     Dosage: 1 DF DAILY AT NIGHT.
     Dates: start: 20141222
  5. AMLODIPINE [Concomitant]
     Active Substance: AMLODIPINE BESYLATE
     Dosage: 1 DF, 1X/DAY
     Dates: start: 20141222
  6. CONOTRANE /01805801/ [Concomitant]
     Dosage: APPLY AS NEEDED.
     Dates: start: 20141222
  7. LACTULOSE. [Concomitant]
     Active Substance: LACTULOSE
     Indication: CONSTIPATION
     Dosage: 15 ML, 2X/DAY
     Dates: start: 20150206
  8. PARACETAMOL [Concomitant]
     Active Substance: ACETAMINOPHEN
     Dosage: TAKE ONE OR TWO TABLETS DISSOLVED IN WATER.
     Dates: start: 20141222
  9. ATENOLOL. [Suspect]
     Active Substance: ATENOLOL
     Dosage: UNK
     Dates: start: 20150428

REACTIONS (1)
  - Hypersensitivity [Recovered/Resolved]

NARRATIVE: CASE EVENT DATE: 20150702
